FAERS Safety Report 20682316 (Version 1)
Quarter: 2022Q2

REPORT INFORMATION
  Report Type: Spontaneous
  Country: US (occurrence: US)
  Receive Date: 20220407
  Receipt Date: 20220407
  Transmission Date: 20220720
  Serious: No
  Sender: FDA-Public Use
  Company Number: US-LUPIN PHARMACEUTICALS INC.-2022-04925

PATIENT
  Age: 66 Year
  Sex: Female
  Weight: 80.272 kg

DRUGS (3)
  1. ATORVASTATIN CALCIUM [Suspect]
     Active Substance: ATORVASTATIN CALCIUM
     Indication: Blood cholesterol increased
     Dosage: UNK
     Route: 048
     Dates: start: 20200818, end: 20220328
  2. AMLODIPINE BESYLATE [Concomitant]
     Active Substance: AMLODIPINE BESYLATE
     Indication: Blood pressure abnormal
     Dosage: UNK
     Route: 065
     Dates: start: 20200818
  3. ALISKIREN [Concomitant]
     Active Substance: ALISKIREN
     Indication: Atrioventricular block
     Dosage: UNK
     Route: 065
     Dates: start: 20200818

REACTIONS (1)
  - Alopecia [Not Recovered/Not Resolved]
